FAERS Safety Report 18664191 (Version 6)
Quarter: 2022Q3

REPORT INFORMATION
  Report Type: Spontaneous
  Country: GB (occurrence: GB)
  Receive Date: 20201225
  Receipt Date: 20220915
  Transmission Date: 20221027
  Serious: Yes (Other)
  Sender: FDA-Public Use
  Company Number: GB-BIOVITRUM-2020GB7861

PATIENT
  Age: 62 Year
  Sex: Male

DRUGS (9)
  1. ORFADIN [Suspect]
     Active Substance: NITISINONE
     Indication: Alkaptonuria
     Dosage: 2 MG
     Dates: start: 2018
  2. ADALAT CC [Concomitant]
     Active Substance: NIFEDIPINE
     Dates: start: 199901
  3. LISINOPRIL [Concomitant]
     Active Substance: LISINOPRIL
     Dosage: 40 MG
     Dates: start: 199901
  4. COLCHICINE [Concomitant]
     Active Substance: COLCHICINE
     Dosage: AS NEEDED.
     Dates: start: 199703
  5. SERTRALINE [Concomitant]
     Active Substance: SERTRALINE HYDROCHLORIDE
     Dosage: 50 MG
  6. DICLOFENAC [Concomitant]
     Active Substance: DICLOFENAC
  7. NIFEDIPINE [Concomitant]
     Active Substance: NIFEDIPINE
  8. CALCIUM CARBONATE\CHOLECALCIFEROL [Concomitant]
     Active Substance: CALCIUM CARBONATE\CHOLECALCIFEROL
  9. TIGER BALM [CAMPHOR;EUCALYPTUS GLOBULUS OIL;MENTHOL;SYZYGIUM AROMATICU [Concomitant]

REACTIONS (5)
  - Lenticular opacities [Unknown]
  - Corneal neovascularisation [Unknown]
  - Cataract [Unknown]
  - Scleral pigmentation [Unknown]
  - Amino acid level increased [Unknown]

NARRATIVE: CASE EVENT DATE: 20180101
